FAERS Safety Report 12228218 (Version 1)
Quarter: 2016Q1

REPORT INFORMATION
  Report Type: Spontaneous
  Country: US (occurrence: None)
  Receive Date: 20160330
  Receipt Date: 20160330
  Transmission Date: 20160526
  Serious: No
  Sender: FDA-Public Use
  Company Number: None

PATIENT
  Age: 95 Year
  Sex: Female
  Weight: 49.44 kg

DRUGS (12)
  1. VITAMIN D3 [Concomitant]
     Active Substance: CHOLECALCIFEROL
  2. KETOCONAZOLE. [Suspect]
     Active Substance: KETOCONAZOLE
     Indication: TINEA VERSICOLOUR
     Dosage: APPLY ENOUGH SHAMPOO TO REACH THE AFFECTED AREA ON THE SCALP
     Route: 061
     Dates: start: 20160308, end: 20160308
  3. POTASSIUM CL [Concomitant]
     Active Substance: POTASSIUM CHLORIDE
  4. AMLODIPINE BESYLATE. [Concomitant]
     Active Substance: AMLODIPINE BESYLATE
  5. COMPLETE MULTIVITAMIN WOMEN 50+ [Concomitant]
  6. ASPIRIN. [Concomitant]
     Active Substance: ASPIRIN
  7. LEVOTHYROXINE. [Concomitant]
     Active Substance: LEVOTHYROXINE
  8. FAMOTIDINE. [Concomitant]
     Active Substance: FAMOTIDINE
  9. FLUTICASONE PROPIONATE. [Concomitant]
     Active Substance: FLUTICASONE PROPIONATE
  10. ACETAMINOPHEN. [Concomitant]
     Active Substance: ACETAMINOPHEN
  11. LISINOPRIL. [Concomitant]
     Active Substance: LISINOPRIL
  12. LORATADINE. [Concomitant]
     Active Substance: LORATADINE

REACTIONS (9)
  - Dysphonia [None]
  - Burning sensation [None]
  - Swollen tongue [None]
  - Pharyngeal oedema [None]
  - Mouth swelling [None]
  - Swelling face [None]
  - Dysphagia [None]
  - Lip swelling [None]
  - Dysgeusia [None]

NARRATIVE: CASE EVENT DATE: 20160308
